FAERS Safety Report 7631868-3 (Version None)
Quarter: 2011Q3

REPORT INFORMATION
  Report Type: 
  Country: None (occurrence: None)
  Receive Date: 20110725
  Receipt Date: 20110421
  Transmission Date: 20111222
  Serious: No
  Sender: FDA-Public Use
  Company Number: US-BRISTOL-MYERS SQUIBB COMPANY-15690365

PATIENT
  Age: 8 Year
  Sex: Female

DRUGS (2)
  1. TACROLIMUS [Concomitant]
  2. COUMADIN [Suspect]
     Indication: MITRAL VALVE REPLACEMENT

REACTIONS (4)
  - DIARRHOEA [None]
  - NASOPHARYNGITIS [None]
  - FATIGUE [None]
  - NAUSEA [None]
